FAERS Safety Report 4276022-0 (Version None)
Quarter: 2004Q1

REPORT INFORMATION
  Report Type: 
  Country: None (occurrence: None)
  Receive Date: 20040121
  Receipt Date: 20030611
  Transmission Date: 20041129
  Serious: No
  Sender: FDA-Public Use
  Company Number: US-GLAXOSMITHKLINE-A0413086A

PATIENT
  Age: 77 Year
  Sex: Male

DRUGS (2)
  1. VALTREX [Suspect]
     Dosage: 2G CUMULATIVE DOSE
     Route: 048
     Dates: start: 20030519, end: 20030501
  2. CONCURRENT MEDICATIONS [Concomitant]

REACTIONS (3)
  - PARAESTHESIA [None]
  - PARAESTHESIA ORAL [None]
  - RASH [None]
